FAERS Safety Report 5149484-4 (Version None)
Quarter: 2006Q4

REPORT INFORMATION
  Report Type: 
  Country: None (occurrence: None)
  Receive Date: 20061113
  Receipt Date: 20060202
  Transmission Date: 20070319
  Serious: No
  Sender: FDA-Public Use
  Company Number: MCN435686

PATIENT
  Sex: Female

DRUGS (1)
  1. COREG [Suspect]
     Indication: SUPRAVENTRICULAR TACHYCARDIA
     Dosage: 3.125MG TWICE PER DAY
     Route: 048
     Dates: start: 20051214

REACTIONS (1)
  - CHEST DISCOMFORT [None]
